FAERS Safety Report 5828548-3 (Version None)
Quarter: 2008Q3

REPORT INFORMATION
  Report Type: 
  Country: None (occurrence: None)
  Receive Date: 20080731
  Receipt Date: 20080722
  Transmission Date: 20090109
  Serious: Yes (Hospitalization, Other)
  Sender: FDA-Public Use
  Company Number: US-JNJFOC-20080406721

PATIENT
  Sex: Female
  Weight: 99.79 kg

DRUGS (6)
  1. DURAGESIC-100 [Suspect]
     Indication: NEUROPATHY PERIPHERAL
     Route: 062
  2. LEVOTHYROXINE SODIUM [Concomitant]
     Indication: THYROID DISORDER
  3. RELAFEN [Concomitant]
     Indication: ARTHRITIS
  4. REGLAN [Concomitant]
     Indication: GASTRIC DISORDER
  5. STEROID [Concomitant]
     Indication: DRUG USE FOR UNKNOWN INDICATION
  6. HYDROMORPHONE HCL [Concomitant]
     Indication: PAIN

REACTIONS (3)
  - PNEUMONIA [None]
  - WITHDRAWAL SYNDROME [None]
  - WRONG TECHNIQUE IN DRUG USAGE PROCESS [None]
